FAERS Safety Report 4666389-3 (Version None)
Quarter: 2005Q2

REPORT INFORMATION
  Report Type: 
  Country: None (occurrence: None)
  Receive Date: 20050519
  Receipt Date: 20050513
  Transmission Date: 20051028
  Serious: Yes (Death)
  Sender: FDA-Public Use
  Company Number: 2005AC00723

PATIENT
  Age: 28 Year
  Sex: Male
  Weight: 57 kg

DRUGS (7)
  1. SEROQUEL [Suspect]
     Indication: SCHIZOPHRENIA, DISORGANISED TYPE
     Route: 048
  2. AKINETON [Concomitant]
     Indication: PARKINSON'S DISEASE
     Route: 048
  3. DEPAKENE [Concomitant]
     Indication: EPILEPSY
     Route: 048
  4. NOCATAMID [Concomitant]
     Indication: ANXIETY
     Route: 048
  5. STILNOX [Concomitant]
     Indication: ANXIETY
     Route: 048
  6. OMEPRAZOLE [Concomitant]
     Indication: GASTRITIS
     Route: 048
  7. ZYPREXA [Concomitant]
     Indication: PSYCHOTIC DISORDER
     Route: 048

REACTIONS (1)
  - COMPLETED SUICIDE [None]
